FAERS Safety Report 7429737-7 (Version None)
Quarter: 2011Q2

REPORT INFORMATION
  Report Type: 
  Country: None (occurrence: None)
  Receive Date: 20110421
  Receipt Date: 20110418
  Transmission Date: 20111010
  Serious: Yes (Other)
  Sender: FDA-Public Use
  Company Number: US-PFIZER INC-2011024756

PATIENT
  Sex: Male

DRUGS (8)
  1. ZIAC [Concomitant]
     Indication: HYPERTENSION
     Dosage: UNK
     Dates: start: 20030101
  2. GLUCOPHAGE [Concomitant]
     Indication: DIABETES MELLITUS
     Dosage: UNK
     Dates: start: 20030101
  3. PAXIL [Concomitant]
     Indication: DEPRESSION
     Dosage: UNK
     Dates: start: 20030101
  4. PAXIL [Concomitant]
     Indication: ANXIETY
  5. CHANTIX [Suspect]
     Indication: SMOKING CESSATION THERAPY
     Dosage: STARTER MONTH PACK
     Dates: start: 20080401, end: 20080501
  6. RANITIDINE [Concomitant]
     Indication: GASTROOESOPHAGEAL REFLUX DISEASE
     Dosage: UNK
     Dates: start: 20000101
  7. XANAX [Concomitant]
     Indication: ANXIETY
     Dosage: UNK
     Dates: start: 20070101
  8. LEVOXYL [Concomitant]
     Indication: HYPOTHYROIDISM
     Dosage: UNK
     Dates: start: 20030101

REACTIONS (13)
  - INSOMNIA [None]
  - ANXIETY [None]
  - ABNORMAL DREAMS [None]
  - SYNCOPE [None]
  - AGGRESSION [None]
  - CONCUSSION [None]
  - ANGER [None]
  - WHIPLASH INJURY [None]
  - DEPRESSION [None]
  - MULTIPLE INJURIES [None]
  - IRRITABILITY [None]
  - LOSS OF CONSCIOUSNESS [None]
  - DISTURBANCE IN ATTENTION [None]
